FAERS Safety Report 10903452 (Version 1)
Quarter: 2015Q1

REPORT INFORMATION
  Report Type: Spontaneous
  Country: US (occurrence: None)
  Receive Date: 20150304
  Receipt Date: 20150304
  Transmission Date: 20150721
  Serious: Yes (Life-Threatening, Hospitalization, Disabling)
  Sender: FDA-Public Use
  Company Number: None

PATIENT
  Age: 36 Year
  Sex: Female
  Weight: 71 kg

DRUGS (12)
  1. RIOCIGUAT [Suspect]
     Active Substance: RIOCIGUAT
     Indication: PULMONARY HYPERTENSION
     Dosage: 1
     Route: 048
     Dates: start: 20140801, end: 20150227
  2. TREPROSTINIL [Suspect]
     Active Substance: TREPROSTINIL
     Indication: PULMONARY HYPERTENSION
     Dosage: CONTINUOUS
     Route: 058
     Dates: start: 20140804, end: 20150303
  3. ALDACTONE [Concomitant]
     Active Substance: SPIRONOLACTONE
  4. CITALOPRAM [Concomitant]
     Active Substance: CITALOPRAM HYDROBROMIDE
  5. FAMOTIDINE. [Concomitant]
     Active Substance: FAMOTIDINE
  6. PROTONIX [Concomitant]
     Active Substance: PANTOPRAZOLE SODIUM
  7. FUROSEMIDE. [Concomitant]
     Active Substance: FUROSEMIDE
  8. CETIRIZINE [Concomitant]
     Active Substance: CETIRIZINE HYDROCHLORIDE
  9. TRAMADOL [Concomitant]
     Active Substance: TRAMADOL
  10. FONDAPARINUX [Concomitant]
     Active Substance: FONDAPARINUX
  11. LOPERAMIDE [Concomitant]
     Active Substance: LOPERAMIDE
  12. GABAPENTIN. [Concomitant]
     Active Substance: GABAPENTIN

REACTIONS (12)
  - Condition aggravated [None]
  - Dyspnoea [None]
  - Somnolence [None]
  - Sedation [None]
  - Cerebral haemorrhage [None]
  - Diarrhoea haemorrhagic [None]
  - Headache [None]
  - Ascites [None]
  - Depression [None]
  - VIIth nerve paralysis [None]
  - Abdominal distension [None]
  - Diarrhoea [None]

NARRATIVE: CASE EVENT DATE: 20150225
